FAERS Safety Report 21793626 (Version 2)
Quarter: 2023Q2

REPORT INFORMATION
  Report Type: Report from Study
  Country: IN (occurrence: IN)
  Receive Date: 20221229
  Receipt Date: 20230526
  Transmission Date: 20230722
  Serious: Yes (Other)
  Sender: FDA-Public Use
  Company Number: IN-002147023-NVSC2022IN300081

PATIENT
  Age: 60 Year
  Sex: Female

DRUGS (1)
  1. RIBOCICLIB [Suspect]
     Active Substance: RIBOCICLIB
     Indication: Breast cancer metastatic
     Dosage: 600 MG, QD
     Route: 065
     Dates: start: 20220610

REACTIONS (4)
  - Breast injury [Recovering/Resolving]
  - Diabetes mellitus [Unknown]
  - Hypertension [Unknown]
  - Dry skin [Unknown]

NARRATIVE: CASE EVENT DATE: 20220908
